FAERS Safety Report 11082925 (Version 1)
Quarter: 2015Q2

REPORT INFORMATION
  Report Type: Spontaneous
  Country: US (occurrence: US)
  Receive Date: 20150501
  Receipt Date: 20150501
  Transmission Date: 20150821
  Serious: No
  Sender: FDA-Public Use
  Company Number: US-ABBVIE-14P-163-1296048-00

PATIENT
  Age: 70 Year
  Sex: Male
  Weight: 61.74 kg

DRUGS (4)
  1. ANDROGEL [Suspect]
     Active Substance: TESTOSTERONE
     Indication: BLOOD TESTOSTERONE DECREASED
     Dosage: 2 PUMPS
     Route: 061
     Dates: start: 201405, end: 201408
  2. ANDROGEL [Suspect]
     Active Substance: TESTOSTERONE
     Dosage: 3 PUMP DAILY
     Route: 061
     Dates: start: 201408, end: 201409
  3. SIMVASTATIN. [Concomitant]
     Active Substance: SIMVASTATIN
     Indication: BLOOD CHOLESTEROL INCREASED
  4. ALEVE [Concomitant]
     Active Substance: NAPROXEN SODIUM
     Indication: ARTHRITIS
     Route: 048

REACTIONS (3)
  - Application site dryness [Recovering/Resolving]
  - Application site erythema [Recovering/Resolving]
  - Application site rash [Recovering/Resolving]

NARRATIVE: CASE EVENT DATE: 201408
